FAERS Safety Report 21992275 (Version 1)
Quarter: 2023Q1

REPORT INFORMATION
  Report Type: Spontaneous
  Country: GB (occurrence: None)
  Receive Date: 20230215
  Receipt Date: 20230215
  Transmission Date: 20230418
  Serious: Yes (Hospitalization)
  Sender: FDA-Public Use
  Company Number: GB-Merck Healthcare KGaA-9382717

PATIENT
  Sex: Female

DRUGS (1)
  1. REBIF [Suspect]
     Active Substance: INTERFERON BETA-1A
     Indication: Multiple sclerosis
     Dosage: 0.5 ML (12 MILLION UNITS) SOLUTION FOR INJECTION PRE-FILLED SYRINGES
     Route: 058

REACTIONS (4)
  - Hospitalisation [Not Recovered/Not Resolved]
  - Confusional state [Not Recovered/Not Resolved]
  - Product dose omission issue [Not Recovered/Not Resolved]
  - Product storage error [Not Recovered/Not Resolved]
